FAERS Safety Report 14900455 (Version 1)
Quarter: 2018Q2

REPORT INFORMATION
  Report Type: Spontaneous
  Country: DE (occurrence: DE)
  Receive Date: 20180516
  Receipt Date: 20180516
  Transmission Date: 20180711
  Serious: Yes (Hospitalization)
  Sender: FDA-Public Use
  Company Number: DE-BAYER-2018-092524

PATIENT
  Age: 79 Year
  Sex: Male
  Weight: 72 kg

DRUGS (4)
  1. INUVAIR [Concomitant]
     Active Substance: BECLOMETHASONE DIPROPIONATE\FORMOTEROL FUMARATE
     Dosage: 100|6 ?G, BID
     Route: 055
  2. ACETYLSALICYLIC ACID({=100 MG) [Suspect]
     Active Substance: ASPIRIN
     Dosage: 100 MG, OM
     Route: 048
  3. SPIRIVA [Concomitant]
     Active Substance: TIOTROPIUM BROMIDE MONOHYDRATE
     Dosage: 5 ?G, OM
     Route: 055
  4. CANDESARTAN. [Concomitant]
     Active Substance: CANDESARTAN
     Dosage: 16 MG, OM
     Route: 048

REACTIONS (6)
  - Gastrointestinal haemorrhage [Unknown]
  - Fatigue [Unknown]
  - Pallor [Unknown]
  - Haematochezia [Unknown]
  - Dyspnoea [Unknown]
  - General physical health deterioration [Unknown]
